FAERS Safety Report 6795746-4 (Version None)
Quarter: 2010Q2

REPORT INFORMATION
  Report Type: 
  Country: None (occurrence: None)
  Receive Date: 20100625
  Receipt Date: 20100618
  Transmission Date: 20101027
  Serious: Yes (Other)
  Sender: FDA-Public Use
  Company Number: B0662199A

PATIENT

DRUGS (1)
  1. ERYTHROMYCIN [Suspect]
     Route: 065

REACTIONS (5)
  - ASTHMA [None]
  - HYPERSENSITIVITY [None]
  - OCCUPATIONAL EXPOSURE TO DRUG [None]
  - RHINITIS [None]
  - WHEEZING [None]
